FAERS Safety Report 25100238 (Version 1)
Quarter: 2025Q1

REPORT INFORMATION
  Report Type: Spontaneous
  Country: US (occurrence: None)
  Receive Date: 20250319
  Receipt Date: 20250319
  Transmission Date: 20250408
  Serious: No
  Sender: FDA-CTU
  Company Number: None

PATIENT
  Age: 50 Year
  Sex: Female
  Weight: 42.75 kg

DRUGS (1)
  1. HUMIRA [Suspect]
     Active Substance: ADALIMUMAB
     Indication: Colitis ulcerative
     Route: 003
     Dates: start: 20240730

REACTIONS (7)
  - Flushing [None]
  - Myalgia [None]
  - Arthralgia [None]
  - Pain in extremity [None]
  - Dry eye [None]
  - Noninfective gingivitis [None]
  - Alopecia [None]

NARRATIVE: CASE EVENT DATE: 20250319
